FAERS Safety Report 25539179 (Version 2)
Quarter: 2025Q3

REPORT INFORMATION
  Report Type: Report from Study
  Country: JP (occurrence: JP)
  Receive Date: 20250710
  Receipt Date: 20250903
  Transmission Date: 20251021
  Serious: Yes (Death)
  Sender: ALNYLAM PHARMACEUTICALS
  Company Number: JP-ALNYLAM PHARMACEUTICALS, INC.-ALN-2025-004242

PATIENT

DRUGS (2)
  1. AMVUTTRA [Suspect]
     Active Substance: VUTRISIRAN
     Indication: Hereditary neuropathic amyloidosis
     Dosage: 25 MILLIGRAM, ONCE EVERY 3 MONTHS
     Route: 058
     Dates: start: 20231225, end: 20250412
  2. VITAMINS [Suspect]
     Active Substance: VITAMINS
     Indication: Vitamin supplementation
     Route: 048
     Dates: end: 20250412

REACTIONS (1)
  - Arrhythmia [Fatal]

NARRATIVE: CASE EVENT DATE: 20250520
